FAERS Safety Report 4861459-9 (Version None)
Quarter: 2005Q4

REPORT INFORMATION
  Report Type: 
  Country: None (occurrence: None)
  Receive Date: 20051220
  Receipt Date: 20051213
  Transmission Date: 20060501
  Serious: Yes (Hospitalization)
  Sender: FDA-Public Use
  Company Number: PHRM2005FR03245

PATIENT
  Age: 61 Year
  Sex: Male
  Weight: 76 kg

DRUGS (16)
  1. NEORAL [Suspect]
     Indication: RENAL TRANSPLANT
     Dosage: 350 MG DAILY
     Route: 048
  2. MOPRAL [Suspect]
     Dosage: 20 MG DAILY
     Route: 048
     Dates: start: 20051108, end: 20051116
  3. CORDARONE [Concomitant]
     Dosage: 1 DF DAILY
     Route: 048
  4. HEPARIN ^CHOAY^ [Concomitant]
     Route: 058
  5. CELLCEPT [Concomitant]
     Indication: RENAL TRANSPLANT
     Dosage: 500 MG DAILY
     Route: 048
  6. SOLU-MEDROL [Concomitant]
  7. FUNGIZONE [Concomitant]
  8. LASILIX [Concomitant]
  9. RENAGEL [Concomitant]
  10. SPECIAFOLDINE [Concomitant]
  11. TARDYFERON [Concomitant]
  12. KAYEXALATE [Concomitant]
  13. POLARAMINE [Concomitant]
  14. PHOSPHALUGEL [Concomitant]
  15. SOTALOL HCL [Concomitant]
  16. CALCIDIA [Concomitant]

REACTIONS (8)
  - ALANINE AMINOTRANSFERASE INCREASED [None]
  - ASPARTATE AMINOTRANSFERASE INCREASED [None]
  - BLOOD BILIRUBIN INCREASED [None]
  - BLOOD BILIRUBIN UNCONJUGATED INCREASED [None]
  - CHOLESTASIS [None]
  - CYTOLYTIC HEPATITIS [None]
  - GAMMA-GLUTAMYLTRANSFERASE INCREASED [None]
  - JAUNDICE [None]
